FAERS Safety Report 7573353-3 (Version None)
Quarter: 2011Q2

REPORT INFORMATION
  Report Type: 
  Country: None (occurrence: None)
  Receive Date: 20110620
  Receipt Date: 20110606
  Transmission Date: 20111010
  Serious: Yes (Other)
  Sender: FDA-Public Use
  Company Number: IT-ACCORD-009519

PATIENT
  Age: 37 Year
  Sex: Female

DRUGS (3)
  1. MYCOPHENOLATE MOFETIL [Suspect]
     Indication: IMMUNOSUPPRESSANT DRUG THERAPY
  2. CORTICOSTEROIDS (CORTICOSTEROIDS) [Suspect]
     Indication: IMMUNOSUPPRESSANT DRUG THERAPY
  3. CYCLOSPORINE [Suspect]
     Indication: IMMUNOSUPPRESSANT DRUG THERAPY

REACTIONS (2)
  - THYROID CANCER [None]
  - ADRENOCORTICAL CARCINOMA [None]
